FAERS Safety Report 17316406 (Version 4)
Quarter: 2020Q2

REPORT INFORMATION
  Report Type: Spontaneous
  Country: GB (occurrence: GB)
  Receive Date: 20200124
  Receipt Date: 20200421
  Transmission Date: 20200713
  Serious: Yes (Other)
  Sender: FDA-Public Use
  Company Number: NVSC2020GB014113

PATIENT
  Age: 44 Year
  Sex: Female
  Weight: 72 kg

DRUGS (5)
  1. OMEPRAZOL [Concomitant]
     Active Substance: OMEPRAZOLE
     Indication: GASTRITIS
     Dosage: 20 OT, QD
     Route: 048
     Dates: start: 20110727
  2. COSENTYX [Suspect]
     Active Substance: SECUKINUMAB
     Indication: PSORIATIC ARTHROPATHY
     Dosage: UNK UNK, QMO
     Route: 058
     Dates: end: 20190902
  3. COSENTYX [Suspect]
     Active Substance: SECUKINUMAB
     Dosage: UNK
     Route: 065
  4. AMITRIPTYLINE [Concomitant]
     Active Substance: AMITRIPTYLINE
     Indication: FIBROMYALGIA
     Dosage: 50 MG, QD
     Route: 048
     Dates: start: 20160224
  5. LEFLUNOMIDE. [Concomitant]
     Active Substance: LEFLUNOMIDE
     Indication: PSORIATIC ARTHROPATHY
     Dosage: 20 MG, QD
     Route: 048
     Dates: start: 20150916, end: 20190902

REACTIONS (17)
  - Organising pneumonia [Recovering/Resolving]
  - Disorientation [Unknown]
  - Dyspnoea [Recovering/Resolving]
  - Cough [Recovered/Resolved]
  - Acute respiratory distress syndrome [Recovered/Resolved]
  - Ischaemic stroke [Unknown]
  - Sepsis [Unknown]
  - Hyperhidrosis [Recovered/Resolved]
  - Candida infection [Unknown]
  - Confusional state [Unknown]
  - Dizziness [Recovering/Resolving]
  - Aortic valve disease [Not Recovered/Not Resolved]
  - Balance disorder [Unknown]
  - Endocarditis [Unknown]
  - Rhinovirus infection [Recovered/Resolved]
  - Pyrexia [Recovered/Resolved]
  - Cerebellar infarction [Recovering/Resolving]

NARRATIVE: CASE EVENT DATE: 20190830
